FAERS Safety Report 22607168 (Version 1)
Quarter: 2023Q2

REPORT INFORMATION
  Report Type: Report from Study
  Country: US (occurrence: US)
  Receive Date: 20230615
  Receipt Date: 20230615
  Transmission Date: 20230721
  Serious: Yes (Other)
  Sender: FDA-Public Use
  Company Number: US-ABBVIE-5288567

PATIENT
  Age: 65 Year
  Sex: Female

DRUGS (1)
  1. HUMIRA [Suspect]
     Active Substance: ADALIMUMAB
     Indication: Rheumatoid arthritis
     Route: 058
     Dates: start: 20211112

REACTIONS (4)
  - Aphonia [Recovering/Resolving]
  - Astigmatism [Unknown]
  - Cataract [Unknown]
  - Pruritus [Unknown]

NARRATIVE: CASE EVENT DATE: 20230601
